FAERS Safety Report 12257260 (Version 1)
Quarter: 2016Q2

REPORT INFORMATION
  Report Type: Spontaneous
  Country: US (occurrence: None)
  Receive Date: 20160411
  Receipt Date: 20160411
  Transmission Date: 20160815
  Serious: Yes (Life-Threatening, Hospitalization)
  Sender: FDA-Public Use
  Company Number: None

PATIENT
  Age: 67 Year
  Sex: Male
  Weight: 128.82 kg

DRUGS (6)
  1. TEKTURNA [Concomitant]
     Active Substance: ALISKIREN HEMIFUMARATE
  2. DICLOFENAC [Suspect]
     Active Substance: DICLOFENAC
     Indication: BACK PAIN
     Route: 048
     Dates: start: 20160222, end: 20160304
  3. TORSEMIDE. [Concomitant]
     Active Substance: TORSEMIDE
  4. HYDROCOD/ACETAM 5-325MG MALLINCKRODT [Concomitant]
     Active Substance: ACETAMINOPHEN\HYDROCODONE
  5. NIFEDIPINE. [Concomitant]
     Active Substance: NIFEDIPINE
  6. METOPROLOL SUCCINATE. [Concomitant]
     Active Substance: METOPROLOL SUCCINATE

REACTIONS (14)
  - Dyspepsia [None]
  - Back pain [None]
  - Rectal haemorrhage [None]
  - Dyspnoea [None]
  - Constipation [None]
  - Abdominal discomfort [None]
  - Loss of consciousness [None]
  - Headache [None]
  - Fatigue [None]
  - Gastrointestinal pain [None]
  - Abdominal distension [None]
  - Decreased appetite [None]
  - Abdominal pain upper [None]
  - Flank pain [None]

NARRATIVE: CASE EVENT DATE: 20160306
